FAERS Safety Report 6286114-2 (Version None)
Quarter: 2009Q3

REPORT INFORMATION
  Report Type: 
  Country: None (occurrence: None)
  Receive Date: 20090728
  Receipt Date: 20090716
  Transmission Date: 20100115
  Serious: Yes (Other)
  Sender: FDA-Public Use
  Company Number: US-ROCHE-613805

PATIENT
  Sex: Female
  Weight: 81.2 kg

DRUGS (4)
  1. PEG-INTERFERON A-2A (RO 25-8310) [Suspect]
     Indication: HEPATITIS C
     Dosage: FORM: PFS, PATIENT IN WEEK 46 OF TREATMENT.
     Route: 058
     Dates: start: 20080815
  2. RIBAVIRIN (NON-ROCHE) [Suspect]
     Indication: HEPATITIS C
     Dosage: PATIENT IN WEEK 46 OF TREATMENT.
     Route: 048
     Dates: start: 20080815
  3. PROZAC [Concomitant]
     Indication: ANXIETY
  4. LIBRIUM [Concomitant]
     Indication: ANXIETY

REACTIONS (11)
  - CONTUSION [None]
  - CONVULSION [None]
  - DIARRHOEA [None]
  - DYSPNOEA [None]
  - FALL [None]
  - HAEMOGLOBIN DECREASED [None]
  - INFLUENZA LIKE ILLNESS [None]
  - INSOMNIA [None]
  - SKIN LACERATION [None]
  - VOMITING [None]
  - WEIGHT DECREASED [None]
